FAERS Safety Report 9756800 (Version 1)
Quarter: 2013Q4

REPORT INFORMATION
  Report Type: Other
  Country: US (occurrence: US)
  Receive Date: 20131213
  Receipt Date: 20131213
  Transmission Date: 20140711
  Serious: Yes (Hospitalization)
  Sender: FDA-Public Use
  Company Number: US-BRISTOL-MYERS SQUIBB COMPANY-19911676

PATIENT
  Age: 85 Year
  Sex: Male

DRUGS (2)
  1. HYDROXYUREA [Suspect]
  2. ASPIRIN [Concomitant]

REACTIONS (1)
  - Plasma cell myeloma [Unknown]
